FAERS Safety Report 9757680 (Version 1)
Quarter: 2013Q4

REPORT INFORMATION
  Report Type: Spontaneous
  Country: BR (occurrence: BR)
  Receive Date: 20131216
  Receipt Date: 20131216
  Transmission Date: 20140711
  Serious: Yes (Hospitalization)
  Sender: FDA-Public Use
  Company Number: BR-ROCHE-1317629

PATIENT
  Sex: Male

DRUGS (2)
  1. RIVOTRIL [Suspect]
     Indication: ANXIETY
     Dosage: USED 6 TABLETS
     Route: 065
     Dates: start: 2012
  2. RIVOTRIL [Suspect]
     Indication: STRESS

REACTIONS (2)
  - Gastrointestinal disorder [Unknown]
  - Back pain [Not Recovered/Not Resolved]
